FAERS Safety Report 5913340-1 (Version None)
Quarter: 2008Q4

REPORT INFORMATION
  Report Type: 
  Country: None (occurrence: None)
  Receive Date: 20081009
  Receipt Date: 20080930
  Transmission Date: 20090506
  Serious: Yes (Other)
  Sender: FDA-Public Use
  Company Number: PHHY2008DE23116

PATIENT
  Sex: Female

DRUGS (1)
  1. ACLASTA [Suspect]
     Dosage: 5 MG ONCE

REACTIONS (5)
  - BALANCE DISORDER [None]
  - EYE DISORDER [None]
  - MUSCULAR WEAKNESS [None]
  - PYREXIA [None]
  - SPEECH DISORDER [None]
